FAERS Safety Report 18629042 (Version 5)
Quarter: 2021Q1

REPORT INFORMATION
  Report Type: Spontaneous
  Country: US (occurrence: US)
  Receive Date: 20201217
  Receipt Date: 20210224
  Transmission Date: 20210419
  Serious: Yes (Life-Threatening, Disabling, Other)
  Sender: FDA-Public Use
  Company Number: US-PFIZER INC-2020496272

PATIENT
  Age: 46 Year
  Sex: Male
  Weight: 102.04 kg

DRUGS (2)
  1. ZOSYN [Suspect]
     Active Substance: PIPERACILLIN SODIUM\TAZOBACTAM SODIUM
     Indication: OSTEOMYELITIS
     Dosage: 3.375 G, 3X/DAY
     Route: 042
     Dates: start: 20201116, end: 20201207
  2. ZOSYN [Suspect]
     Active Substance: PIPERACILLIN SODIUM\TAZOBACTAM SODIUM
     Indication: STAPHYLOCOCCAL INFECTION

REACTIONS (13)
  - Illness [Unknown]
  - Hepatic enzyme increased [Unknown]
  - Chest pain [Unknown]
  - Chills [Unknown]
  - Infection susceptibility increased [Unknown]
  - Blood alkaline phosphatase increased [Unknown]
  - White blood cell count decreased [Unknown]
  - Impaired healing [Unknown]
  - Drug hypersensitivity [Recovered/Resolved]
  - Nausea [Unknown]
  - Tremor [Unknown]
  - Aspartate aminotransferase increased [Unknown]
  - Back pain [Unknown]

NARRATIVE: CASE EVENT DATE: 20201205
